FAERS Safety Report 24948055 (Version 1)
Quarter: 2025Q1

REPORT INFORMATION
  Report Type: Spontaneous
  Country: DE (occurrence: DE)
  Receive Date: 20250210
  Receipt Date: 20250210
  Transmission Date: 20250409
  Serious: No
  Sender: ALKEM
  Company Number: None

PATIENT
  Sex: Female
  Weight: 58 kg

DRUGS (5)
  1. EZETIMIBE [Suspect]
     Active Substance: EZETIMIBE
     Indication: Hyperlipidaemia
     Route: 048
     Dates: start: 20201019, end: 20210614
  2. EZETIMIBE [Suspect]
     Active Substance: EZETIMIBE
     Route: 048
     Dates: start: 20220523, end: 20220704
  3. EZETIMIBE [Suspect]
     Active Substance: EZETIMIBE
     Route: 065
  4. BEMPEDOIC ACID [Suspect]
     Active Substance: BEMPEDOIC ACID
     Indication: Hyperlipidaemia
     Route: 048
     Dates: start: 20220523, end: 20220829
  5. BEMPEDOIC ACID [Suspect]
     Active Substance: BEMPEDOIC ACID
     Route: 065

REACTIONS (2)
  - Malaise [Unknown]
  - Headache [Unknown]
